FAERS Safety Report 23056332 (Version 1)
Quarter: 2023Q4

REPORT INFORMATION
  Report Type: Spontaneous
  Country: US (occurrence: US)
  Receive Date: 20231011
  Receipt Date: 20231011
  Transmission Date: 20240110
  Serious: Yes (Other)
  Sender: FDA-Public Use
  Company Number: US-TEVA-2023-US-2933089

PATIENT
  Age: 69 Year
  Sex: Female

DRUGS (3)
  1. FLUDARABINE [Suspect]
     Active Substance: FLUDARABINE PHOSPHATE
     Indication: Lymphodepletion
     Dosage: ON DAY 1 TO DAY 3, BEFORE THE SECOND ROUND OF CAR-T THERAPY
     Route: 065
     Dates: start: 202206
  2. CYCLOPHOSPHAMIDE [Suspect]
     Active Substance: CYCLOPHOSPHAMIDE
     Indication: Lymphodepletion
     Dosage: ON DAY 1 TO DAY 3, BEFORE THE SECOND ROUND OF CAR-T THERAPY
     Route: 065
     Dates: start: 202206
  3. CIDOFOVIR [Suspect]
     Active Substance: CIDOFOVIR
     Indication: Adenovirus infection
     Dosage: 1 MG/KG
     Route: 065
     Dates: start: 2022

REACTIONS (8)
  - Adenovirus infection [Recovered/Resolved]
  - Acute kidney injury [Unknown]
  - Renal tubular necrosis [Unknown]
  - Toxicity to various agents [Unknown]
  - Drug ineffective [Unknown]
  - Proteinuria [Unknown]
  - Metabolic acidosis [Unknown]
  - Azotaemia [Unknown]

NARRATIVE: CASE EVENT DATE: 20220101
